FAERS Safety Report 21376043 (Version 1)
Quarter: 2022Q3

REPORT INFORMATION
  Report Type: Spontaneous
  Country: US (occurrence: None)
  Receive Date: 20220923
  Receipt Date: 20220923
  Transmission Date: 20221027
  Serious: Yes (Hospitalization, Disabling, Other)
  Sender: FDA-Public Use
  Company Number: None

PATIENT
  Age: 38 Year
  Sex: Female
  Weight: 87.3 kg

DRUGS (2)
  1. TRAZODONE [Suspect]
     Active Substance: TRAZODONE HYDROCHLORIDE
     Indication: Sleep disorder therapy
     Dosage: OTHER QUANTITY : 30 TABLET(S);?FREQUENCY : AT BEDTIME;?
     Route: 048
     Dates: start: 20211130
  2. TRAZODONE [Suspect]
     Active Substance: TRAZODONE HYDROCHLORIDE
     Indication: Post-traumatic stress disorder

REACTIONS (9)
  - Peroneal nerve palsy [None]
  - Nausea [None]
  - Vomiting [None]
  - Headache [None]
  - Migraine [None]
  - Depression [None]
  - Disturbance in attention [None]
  - Thinking abnormal [None]
  - Drug withdrawal syndrome [None]

NARRATIVE: CASE EVENT DATE: 20220101
